FAERS Safety Report 11629156 (Version 1)
Quarter: 2015Q4

REPORT INFORMATION
  Report Type: Spontaneous
  Country: US (occurrence: None)
  Receive Date: 20151013
  Receipt Date: 20151013
  Transmission Date: 20160304
  Serious: No
  Sender: FDA-Public Use
  Company Number: None

PATIENT
  Age: 5 Day
  Sex: Female
  Weight: 73.48 kg

DRUGS (17)
  1. ZIPRASIDONE. [Suspect]
     Active Substance: ZIPRASIDONE
     Indication: BIPOLAR DISORDER
     Dosage: 1 PILL
     Route: 048
  2. AMLODIPINE BESYLATE. [Concomitant]
     Active Substance: AMLODIPINE BESYLATE
  3. CLONAZAPAM [Concomitant]
  4. GABAPENTIN. [Concomitant]
     Active Substance: GABAPENTIN
  5. LISINOPRIL. [Concomitant]
     Active Substance: LISINOPRIL
  6. MECLIZINE [Concomitant]
     Active Substance: MECLIZINE\MECLIZINE HYDROCHLORIDE
  7. FLUTICASONE [Concomitant]
     Active Substance: FLUTICASONE\FLUTICASONE PROPIONATE
  8. LORAZEPAM. [Concomitant]
     Active Substance: LORAZEPAM
  9. OMEPRAZOLE. [Concomitant]
     Active Substance: OMEPRAZOLE
  10. ATORVASTATIN [Concomitant]
     Active Substance: ATORVASTATIN
  11. PERCOCET [Concomitant]
     Active Substance: ACETAMINOPHEN\OXYCODONE HYDROCHLORIDE
  12. ACETOMINIPHIN [Concomitant]
  13. ROPINIROLE. [Concomitant]
     Active Substance: ROPINIROLE
  14. CELECOXIB. [Concomitant]
     Active Substance: CELECOXIB
  15. LAMOTRIGINE. [Concomitant]
     Active Substance: LAMOTRIGINE
  16. METROPROLOL [Concomitant]
     Active Substance: METOPROLOL
  17. FOLIC ACID. [Concomitant]
     Active Substance: FOLIC ACID

REACTIONS (5)
  - Restless legs syndrome [None]
  - Photophobia [None]
  - Disturbance in attention [None]
  - Feeling abnormal [None]
  - Movement disorder [None]

NARRATIVE: CASE EVENT DATE: 20150922
